FAERS Safety Report 18576697 (Version 5)
Quarter: 2021Q3

REPORT INFORMATION
  Report Type: Report from Study
  Country: US (occurrence: US)
  Receive Date: 20201203
  Receipt Date: 20210710
  Transmission Date: 20211014
  Serious: No
  Sender: FDA-Public Use
  Company Number: NVSC2020US322503

PATIENT
  Age: 69 Year
  Sex: Female

DRUGS (3)
  1. ENTRESTO [Suspect]
     Active Substance: SACUBITRIL\VALSARTAN
     Dosage: 100 MG, BID
     Route: 048
  2. ENTRESTO [Suspect]
     Active Substance: SACUBITRIL\VALSARTAN
     Indication: CARDIAC FAILURE CONGESTIVE
     Dosage: 0.5 DF, BID (49/51 MG, BID)
     Route: 048
     Dates: start: 20201102, end: 20201207
  3. ENTRESTO [Suspect]
     Active Substance: SACUBITRIL\VALSARTAN
     Dosage: 50 MG, (24/26MG) BID
     Route: 048
     Dates: start: 20210412

REACTIONS (10)
  - Muscle fatigue [Unknown]
  - Hypertension [Not Recovered/Not Resolved]
  - Incorrect dose administered [Recovering/Resolving]
  - Gastrointestinal disorder [Recovering/Resolving]
  - Blood potassium increased [Recovering/Resolving]
  - Blood potassium increased [Recovered/Resolved]
  - Cough [Unknown]
  - Dyspnoea [Not Recovered/Not Resolved]
  - Weight decreased [Unknown]
  - Weight fluctuation [Unknown]

NARRATIVE: CASE EVENT DATE: 202011
